FAERS Safety Report 14897053 (Version 2)
Quarter: 2018Q2

REPORT INFORMATION
  Report Type: Report from Study
  Country: US (occurrence: US)
  Receive Date: 20180515
  Receipt Date: 20180601
  Transmission Date: 20180711
  Serious: Yes (Hospitalization)
  Sender: FDA-Public Use
  Company Number: US-ADAMAS PHARMA, LLC-2018ADA00668

PATIENT
  Age: 76 Year
  Sex: Female

DRUGS (4)
  1. GOCOVRI [Suspect]
     Active Substance: AMANTADINE
     Dosage: 274 MG, 1X/DAY
     Route: 048
     Dates: start: 20180426, end: 20180428
  2. ROPINIROLE. [Concomitant]
     Active Substance: ROPINIROLE
  3. SINEMET [Concomitant]
     Active Substance: CARBIDOPA\LEVODOPA
  4. GOCOVRI [Suspect]
     Active Substance: AMANTADINE
     Indication: DYSKINESIA
     Dosage: 137 MG, 1X/DAY
     Route: 048
     Dates: start: 20180419, end: 20180425

REACTIONS (8)
  - Muscle rigidity [Unknown]
  - Parkinson^s disease [Unknown]
  - Dysstasia [Unknown]
  - Gait disturbance [Unknown]
  - Aphasia [Unknown]
  - Dry mouth [Unknown]
  - Urinary retention [Unknown]
  - Dysphagia [Unknown]

NARRATIVE: CASE EVENT DATE: 2018
